FAERS Safety Report 6230311-9 (Version None)
Quarter: 2009Q2

REPORT INFORMATION
  Report Type: 
  Country: None (occurrence: None)
  Receive Date: 20090615
  Receipt Date: 20090610
  Transmission Date: 20091009
  Serious: Yes (Other)
  Sender: FDA-Public Use
  Company Number: PL-MERCK-0906POL00009

PATIENT
  Age: 35 Year
  Sex: Male
  Weight: 69 kg

DRUGS (4)
  1. SINGULAIR [Suspect]
     Indication: ASTHMA
     Route: 048
     Dates: start: 20081001, end: 20090608
  2. SINGULAIR [Suspect]
     Indication: CONJUNCTIVITIS ALLERGIC
     Route: 048
     Dates: start: 20081001, end: 20090608
  3. CICLESONIDE [Concomitant]
     Indication: ASTHMA
     Route: 065
     Dates: start: 20060101
  4. CICLESONIDE [Concomitant]
     Indication: CONJUNCTIVITIS ALLERGIC
     Route: 065
     Dates: start: 20060101

REACTIONS (4)
  - DYSAESTHESIA [None]
  - HYPOREFLEXIA [None]
  - MUSCULAR WEAKNESS [None]
  - PARAESTHESIA [None]
